FAERS Safety Report 13140184 (Version 1)
Quarter: 2017Q1

REPORT INFORMATION
  Report Type: Spontaneous
  Country: US (occurrence: US)
  Receive Date: 20170123
  Receipt Date: 20170123
  Transmission Date: 20170428
  Serious: No
  Sender: FDA-Public Use
  Company Number: US-UNITED THERAPEUTICS-UNT-2016-015057

PATIENT
  Age: 36 Year
  Sex: Male
  Weight: 60.32 kg

DRUGS (3)
  1. TYVASO [Suspect]
     Active Substance: TREPROSTINIL
     Indication: PULMONARY HYPERTENSION
     Dosage: 18-54 MICROGRAMS, QID
     Dates: start: 20160916
  2. TYVASO [Suspect]
     Active Substance: TREPROSTINIL
     Dosage: UNK
  3. LETAIRIS [Concomitant]
     Active Substance: AMBRISENTAN
     Indication: PRODUCT USED FOR UNKNOWN INDICATION

REACTIONS (10)
  - Nausea [Not Recovered/Not Resolved]
  - Thrombosis [Unknown]
  - Nasal congestion [Unknown]
  - Sinusitis [Recovered/Resolved]
  - Arthralgia [Unknown]
  - Chest pain [Unknown]
  - Cough [Unknown]
  - Throat irritation [Unknown]
  - Tendonitis [Unknown]
  - Poor quality sleep [Unknown]

NARRATIVE: CASE EVENT DATE: 201609
